FAERS Safety Report 9103889 (Version 3)
Quarter: 2013Q1

REPORT INFORMATION
  Report Type: Spontaneous
  Country: JP (occurrence: JP)
  Receive Date: 20130219
  Receipt Date: 20130322
  Transmission Date: 20140127
  Serious: Yes (Life-Threatening, Other)
  Sender: FDA-Public Use
  Company Number: JP-PFIZER INC-2013059436

PATIENT
  Age: 62 Year
  Sex: Female

DRUGS (4)
  1. ZYVOX [Suspect]
     Indication: STAPHYLOCOCCAL INFECTION
     Dosage: 600 MG, 2X/DAY
     Route: 041
     Dates: start: 20130117, end: 20130126
  2. ZYVOX [Suspect]
     Indication: SPONDYLITIS
  3. CEFTRIAXONE [Concomitant]
     Indication: SPONDYLITIS
     Dosage: 2 G, 2X/DAY
     Route: 041
     Dates: start: 20121227, end: 20130106
  4. VANCOMYCIN [Concomitant]
     Indication: SPONDYLITIS
     Dosage: 0.5 G, 2X/DAY
     Route: 041
     Dates: start: 20130106, end: 20130116

REACTIONS (4)
  - Anaemia [Recovered/Resolved]
  - Platelet count decreased [Recovered/Resolved]
  - White blood cell count decreased [Recovered/Resolved]
  - Febrile neutropenia [Recovered/Resolved]
